FAERS Safety Report 11052523 (Version 2)
Quarter: 2015Q2

REPORT INFORMATION
  Report Type: Spontaneous
  Country: US (occurrence: US)
  Receive Date: 20150421
  Receipt Date: 20150525
  Transmission Date: 20150821
  Serious: No
  Sender: FDA-Public Use
  Company Number: US-JNJFOC-20130202505

PATIENT
  Age: 58 Year
  Sex: Female
  Weight: 79.38 kg

DRUGS (5)
  1. RISPERDAL CONSTA [Suspect]
     Active Substance: RISPERIDONE
     Indication: ACCIDENTAL EXPOSURE TO PRODUCT
     Route: 030
  2. COZAAR [Concomitant]
     Active Substance: LOSARTAN POTASSIUM
     Route: 048
  3. ACIPHEX [Concomitant]
     Active Substance: RABEPRAZOLE SODIUM
     Route: 048
  4. COREG [Concomitant]
     Active Substance: CARVEDILOL
     Route: 048
  5. LEVOTHYROXINE [Concomitant]
     Active Substance: LEVOTHYROXINE
     Route: 048

REACTIONS (2)
  - Accidental exposure to product [Recovered/Resolved]
  - Product physical issue [Unknown]

NARRATIVE: CASE EVENT DATE: 20130125
